FAERS Safety Report 8021018-6 (Version None)
Quarter: 2011Q4

REPORT INFORMATION
  Report Type: 
  Country: None (occurrence: None)
  Receive Date: 20111229
  Receipt Date: 20111213
  Transmission Date: 20120403
  Serious: Yes (Hospitalization)
  Sender: FDA-Public Use
  Company Number: 2010AP002214

PATIENT
  Age: 66 Year
  Sex: Female

DRUGS (6)
  1. ZOPICLONE (ZOPICLONE) [Concomitant]
  2. CLOZARIL [Suspect]
     Indication: SCHIZOPHRENIA
     Dosage: 400 MG
     Route: 048
     Dates: start: 20091002
  3. CITALOPRAM HYDROBROMIDE [Suspect]
     Indication: DEPRESSION
     Dosage: 20 MG;QD
     Route: 048
     Dates: end: 20100722
  4. ISOSORBIDE MONONITRATE [Concomitant]
  5. PROCHLORPERAZINE MALEATE [Concomitant]
  6. SIMVASTATIN [Concomitant]

REACTIONS (9)
  - OESOPHAGEAL ULCER [None]
  - HAEMATEMESIS [None]
  - GASTROINTESTINAL ULCER [None]
  - OESOPHAGITIS [None]
  - GASTROINTESTINAL HAEMORRHAGE [None]
  - URINARY TRACT INFECTION [None]
  - FALL [None]
  - DIZZINESS [None]
  - LOSS OF CONSCIOUSNESS [None]
